FAERS Safety Report 20020151 (Version 2)
Quarter: 2022Q1

REPORT INFORMATION
  Report Type: Report from Study
  Country: IL (occurrence: IL)
  Receive Date: 20211101
  Receipt Date: 20220331
  Transmission Date: 20220423
  Serious: Yes (Hospitalization, Other)
  Sender: FDA-Public Use
  Company Number: IL-TAKEDA-2021TUS066973

PATIENT
  Sex: Male

DRUGS (2)
  1. VELAGLUCERASE ALFA [Suspect]
     Active Substance: VELAGLUCERASE ALFA
     Indication: Gaucher^s disease
     Dosage: 3 DOSAGE FORM, Q2WEEKS
     Route: 042
     Dates: start: 20180116
  2. VELAGLUCERASE ALFA [Suspect]
     Active Substance: VELAGLUCERASE ALFA
     Dosage: 3 DOSAGE FORM, Q2WEEKS
     Route: 042
     Dates: start: 20180125

REACTIONS (2)
  - Cholecystitis infective [Unknown]
  - COVID-19 [Not Recovered/Not Resolved]
